FAERS Safety Report 24868702 (Version 1)
Quarter: 2025Q1

REPORT INFORMATION
  Report Type: Report from Study
  Country: US (occurrence: US)
  Receive Date: 20250121
  Receipt Date: 20250121
  Transmission Date: 20250408
  Serious: Yes (Death, Other)
  Sender: BAYER HEALTHCARE PHARMACEUTICALS INC.
  Company Number: US-BAYER-2025A004484

PATIENT
  Age: 79 Year
  Sex: Male

DRUGS (1)
  1. NUBEQA [Suspect]
     Active Substance: DAROLUTAMIDE
     Dosage: 600 MG, BID

REACTIONS (2)
  - Death [Fatal]
  - Pneumonia [None]

NARRATIVE: CASE EVENT DATE: 20250109
